FAERS Safety Report 6523449-X (Version None)
Quarter: 2009Q4

REPORT INFORMATION
  Report Type: 
  Country: None (occurrence: None)
  Receive Date: 20091222
  Receipt Date: 20091211
  Transmission Date: 20100525
  Serious: Yes (Death)
  Sender: FDA-Public Use
  Company Number: SPV1-2009-02551

PATIENT
  Age: 14 Year
  Sex: Male
  Weight: 22 kg

DRUGS (1)
  1. ELAPRASE [Suspect]
     Indication: MUCOPOLYSACCHARIDOSIS II
     Dosage: 6 ML, 1X/WEEK, IV DRIP
     Route: 041
     Dates: start: 20080626, end: 20091001

REACTIONS (1)
  - RESPIRATORY FAILURE [None]
